FAERS Safety Report 6506108-9 (Version None)
Quarter: 2009Q4

REPORT INFORMATION
  Report Type: 
  Country: None (occurrence: None)
  Receive Date: 20091218
  Receipt Date: 20091210
  Transmission Date: 20100525
  Serious: Yes (Hospitalization, Other)
  Sender: FDA-Public Use
  Company Number: BR-ABBOTT-09P-020-0499711-00

PATIENT
  Sex: Female
  Weight: 73 kg

DRUGS (9)
  1. HUMIRA [Suspect]
     Indication: RHEUMATOID ARTHRITIS
     Route: 058
     Dates: start: 20081201
  2. CORTISONE [Suspect]
     Indication: FEMUR FRACTURE
  3. SERETIDE [Concomitant]
     Indication: ASTHMA
     Route: 055
  4. SERETIDE [Concomitant]
     Indication: BRONCHITIS
  5. SPIRA [Concomitant]
     Indication: ASTHMA
     Route: 055
  6. SPIRA [Concomitant]
     Indication: LUNG DISORDER
  7. SPIRA [Concomitant]
     Indication: PROPHYLAXIS
  8. NIMESULIDE/RANITIDINE/CODEINE [Concomitant]
     Indication: PAIN
     Dosage: 150 MG/150 MG/10 MG
     Route: 048
  9. NIMESULIDE/RANITIDINE/CODEINE [Concomitant]
     Indication: GASTRIC DISORDER

REACTIONS (7)
  - ARTHRALGIA [None]
  - FALL [None]
  - FEMUR FRACTURE [None]
  - GROIN PAIN [None]
  - MUSCLE SWELLING [None]
  - PAIN [None]
  - WEIGHT INCREASED [None]
